FAERS Safety Report 25403744 (Version 1)
Quarter: 2025Q2

REPORT INFORMATION
  Report Type: Spontaneous
  Country: DE (occurrence: DE)
  Receive Date: 20250606
  Receipt Date: 20250606
  Transmission Date: 20250716
  Serious: Yes (Other)
  Sender: Harrow Health
  Company Number: DE-HARROW-HAR-2025-DE-00211

PATIENT
  Sex: Female
  Weight: 58 kg

DRUGS (14)
  1. NEVANAC [Suspect]
     Active Substance: NEPAFENAC
     Route: 065
  2. EXELON [Suspect]
     Active Substance: RIVASTIGMINE TARTRATE
     Indication: Dementia Alzheimer^s type
     Route: 062
     Dates: start: 2013
  3. EXELON [Suspect]
     Active Substance: RIVASTIGMINE TARTRATE
     Route: 062
     Dates: start: 2013
  4. EXELON [Suspect]
     Active Substance: RIVASTIGMINE TARTRATE
     Route: 062
     Dates: start: 2020
  5. EXELON [Suspect]
     Active Substance: RIVASTIGMINE TARTRATE
     Route: 062
     Dates: end: 2020
  6. EXELON [Suspect]
     Active Substance: RIVASTIGMINE TARTRATE
     Route: 062
     Dates: start: 2022, end: 20220618
  7. MAGNESIUM [Suspect]
     Active Substance: MAGNESIUM
     Route: 065
     Dates: end: 2023
  8. DEXAMETHASONE\NEOMYCIN SULFATE\POLYMYXIN B SULFATE [Suspect]
     Active Substance: DEXAMETHASONE\NEOMYCIN SULFATE\POLYMYXIN B SULFATE
     Route: 065
  9. LITHIUM [Suspect]
     Active Substance: LITHIUM
     Indication: Dementia Alzheimer^s type
     Route: 065
     Dates: end: 2019
  10. EXELON [Concomitant]
     Active Substance: RIVASTIGMINE TARTRATE
  11. CRENEZUMAB [Concomitant]
     Active Substance: CRENEZUMAB
     Dates: start: 20190108, end: 20190108
  12. ETILEFRINE HYDROCHLORIDE [Concomitant]
     Active Substance: ETILEFRINE HYDROCHLORIDE
  13. CAMPHOR (SYNTHETIC)\MENTHOL [Concomitant]
     Active Substance: CAMPHOR (SYNTHETIC)\MENTHOL
  14. ESTRIOL [Concomitant]
     Active Substance: ESTRIOL

REACTIONS (24)
  - Cataract [Unknown]
  - Epilepsy [Recovered/Resolved]
  - Hip fracture [Unknown]
  - Renal failure [Unknown]
  - Dementia Alzheimer^s type [Not Recovered/Not Resolved]
  - Aphasia [Not Recovered/Not Resolved]
  - Cognitive disorder [Not Recovered/Not Resolved]
  - Memory impairment [Not Recovered/Not Resolved]
  - Blood pressure decreased [Unknown]
  - Muscle twitching [Recovered/Resolved]
  - Osteopenia [Unknown]
  - Asthenia [Unknown]
  - Cardiovascular disorder [Unknown]
  - Migraine [Unknown]
  - Varicose vein [Unknown]
  - Muscle spasms [Unknown]
  - Urinary tract infection [Unknown]
  - Nausea [Unknown]
  - Vitamin B12 deficiency [Unknown]
  - Fatigue [Unknown]
  - Restlessness [Unknown]
  - Wrong technique in product usage process [Unknown]
  - Product administration error [Unknown]
  - Drug intolerance [Unknown]

NARRATIVE: CASE EVENT DATE: 20160116
